FAERS Safety Report 21079645 (Version 1)
Quarter: 2022Q3

REPORT INFORMATION
  Report Type: Spontaneous
  Country: US (occurrence: US)
  Receive Date: 20220714
  Receipt Date: 20220714
  Transmission Date: 20221026
  Serious: No
  Sender: FDA-Public Use
  Company Number: US-PRINSTON PHARMACEUTICAL INC.-2021PRN00271

PATIENT
  Sex: Female
  Weight: 77.11 kg

DRUGS (4)
  1. LISINOPRIL [Suspect]
     Active Substance: LISINOPRIL
     Indication: Blood pressure abnormal
     Dosage: 20 MG
     Dates: end: 2021
  2. LISINOPRIL [Suspect]
     Active Substance: LISINOPRIL
     Dosage: 40 MG
     Dates: start: 2021, end: 2021
  3. LISINOPRIL [Suspect]
     Active Substance: LISINOPRIL
     Dosage: 20 MG
     Dates: start: 2021
  4. PFIZER-BIONTECH COVID-19 VACCINE [Suspect]
     Active Substance: TOZINAMERAN
     Dosage: FIRST DOSE, LEFT ARM
     Dates: start: 20210302

REACTIONS (4)
  - Renal pain [Recovered/Resolved]
  - Hypertension [Recovered/Resolved]
  - Drug ineffective [Recovered/Resolved]
  - Pharyngitis streptococcal [Unknown]

NARRATIVE: CASE EVENT DATE: 20210101
